FAERS Safety Report 8123428-5 (Version None)
Quarter: 2012Q1

REPORT INFORMATION
  Report Type: 
  Country: None (occurrence: None)
  Receive Date: 20120208
  Receipt Date: 20120203
  Transmission Date: 20120608
  Serious: Yes (Other)
  Sender: FDA-Public Use
  Company Number: US-PFIZER INC-2012030694

PATIENT
  Sex: Female
  Weight: 88.435 kg

DRUGS (4)
  1. PRAVACHOL [Concomitant]
     Indication: BLOOD CHOLESTEROL INCREASED
     Dosage: 20 MG, 1X/DAY
  2. AMLODIPINE BESILATE [Concomitant]
     Indication: HYPERTENSION
     Dosage: 5 MG, DAILY
  3. XALATAN [Suspect]
     Indication: GLAUCOMA
     Dosage: 1 GTT IN EACH EYE, 1X/DAY
  4. ASPIRIN [Concomitant]
     Dosage: 81 MG, DAILY

REACTIONS (2)
  - VISUAL ACUITY REDUCED [None]
  - EYE OEDEMA [None]
